FAERS Safety Report 21616744 (Version 1)
Quarter: 2022Q4

REPORT INFORMATION
  Report Type: Spontaneous
  Country: US (occurrence: None)
  Receive Date: 20221118
  Receipt Date: 20221118
  Transmission Date: 20230113
  Serious: No
  Sender: FDA-Public Use
  Company Number: None

PATIENT
  Sex: 0

DRUGS (1)
  1. STELARA [Suspect]
     Active Substance: USTEKINUMAB

REACTIONS (8)
  - Infusion related reaction [None]
  - Flushing [None]
  - Urticaria [None]
  - Cough [None]
  - Dyspnoea [None]
  - Throat tightness [None]
  - Wheezing [None]
  - Chest pain [None]
